FAERS Safety Report 26125232 (Version 1)
Quarter: 2025Q4

REPORT INFORMATION
  Report Type: Report from Study
  Country: BR (occurrence: None)
  Receive Date: 20251205
  Receipt Date: 20251205
  Transmission Date: 20260118
  Serious: Yes (Other)
  Sender: UCB
  Company Number: BR-UCBSA-2025076408

PATIENT
  Age: 41 Year
  Weight: 99 kg

DRUGS (2)
  1. CERTOLIZUMAB PEGOL [Suspect]
     Active Substance: CERTOLIZUMAB PEGOL
     Indication: Ankylosing spondylitis
     Dosage: 400 MILLIGRAM, EV 30 DAYS
  2. AZULFIDINE [Concomitant]
     Active Substance: SULFASALAZINE
     Indication: Ankylosing spondylitis
     Dosage: 3 TABLETS A DAY

REACTIONS (3)
  - Pterygium [Unknown]
  - Pterygium operation [Recovered/Resolved]
  - Inappropriate schedule of product administration [Unknown]
